FAERS Safety Report 24787630 (Version 1)
Quarter: 2024Q4

REPORT INFORMATION
  Report Type: Spontaneous
  Country: CN (occurrence: CN)
  Receive Date: 20241230
  Receipt Date: 20241230
  Transmission Date: 20250115
  Serious: Yes (Hospitalization)
  Sender: SANDOZ
  Company Number: CN-002147023-NVSC2024CN245291

PATIENT
  Age: 69 Year
  Sex: Female

DRUGS (1)
  1. FLUVASTATIN SODIUM [Suspect]
     Active Substance: FLUVASTATIN SODIUM
     Indication: Arteriosclerosis coronary artery
     Dosage: 80 MG, QD, (EXTENDED RELEASE)
     Route: 048
     Dates: start: 20240319, end: 20241223

REACTIONS (7)
  - Angina pectoris [Unknown]
  - Disease recurrence [Unknown]
  - Chest discomfort [Unknown]
  - Chest pain [Unknown]
  - Hypertension [Unknown]
  - Blood glucose increased [Unknown]
  - Glycosylated haemoglobin increased [Unknown]

NARRATIVE: CASE EVENT DATE: 20241218
